FAERS Safety Report 24398175 (Version 2)
Quarter: 2024Q4

REPORT INFORMATION
  Report Type: Spontaneous
  Country: US (occurrence: US)
  Receive Date: 20241004
  Receipt Date: 20241026
  Transmission Date: 20250114
  Serious: No
  Sender: MERCK
  Company Number: US-009507513-2408USA007594

PATIENT
  Sex: Female
  Weight: 58.957 kg

DRUGS (14)
  1. WINREVAIR [Suspect]
     Active Substance: SOTATERCEPT-CSRK
     Indication: Pulmonary arterial hypertension
     Dosage: 0.7 MILLIGRAM/KILOGRAM, Q3W
     Dates: start: 20240603
  2. REMODULIN [Suspect]
     Active Substance: TREPROSTINIL
     Indication: Pulmonary arterial hypertension
     Dosage: 0.083 MICROGRAM PER KILOGRAM, CONTINUOUS VIA SUBCUTANEOUS (SQ) ROUTE
     Route: 058
     Dates: start: 20220408
  3. TADALAFIL [Concomitant]
     Active Substance: TADALAFIL
  4. VITAMINS [Concomitant]
     Active Substance: VITAMINS
  5. BACLOFEN [Concomitant]
     Active Substance: BACLOFEN
  6. MORPHINE SULFATE [Concomitant]
     Active Substance: MORPHINE SULFATE
  7. LIDOCAINE HYDROCHLORIDE [Concomitant]
     Active Substance: LIDOCAINE HYDROCHLORIDE
  8. DIGOXIN [Concomitant]
     Active Substance: DIGOXIN
  9. GABAPENTIN [Concomitant]
     Active Substance: GABAPENTIN
  10. FUROSEMIDE [Concomitant]
     Active Substance: FUROSEMIDE
  11. ONDANSETRON HYDROCHLORIDE [Concomitant]
     Active Substance: ONDANSETRON HYDROCHLORIDE
  12. DIPHENHYDRAMINE HYDROCHLORIDE [Concomitant]
     Active Substance: DIPHENHYDRAMINE HYDROCHLORIDE
  13. IMODIUM A-D [Concomitant]
     Active Substance: LOPERAMIDE HYDROCHLORIDE
  14. OPSUMIT [Concomitant]
     Active Substance: MACITENTAN

REACTIONS (8)
  - Full blood count decreased [Unknown]
  - Infusion site swelling [Unknown]
  - Conjunctivitis [Recovered/Resolved]
  - Injection site reaction [Unknown]
  - Telangiectasia [Recovering/Resolving]
  - Telangiectasia [Not Recovered/Not Resolved]
  - Epistaxis [Recovered/Resolved]
  - Product dose omission issue [Unknown]

NARRATIVE: CASE EVENT DATE: 20240101
